FAERS Safety Report 7776989-X (Version None)
Quarter: 2011Q3

REPORT INFORMATION
  Report Type: 
  Country: None (occurrence: None)
  Receive Date: 20110923
  Receipt Date: 20110923
  Transmission Date: 20111222
  Serious: Yes (Death)
  Sender: FDA-Public Use
  Company Number: None

PATIENT
  Sex: Female
  Weight: 55.32 kg

DRUGS (1)
  1. ARANESP [Suspect]
     Indication: ANAEMIA OF CHRONIC DISEASE
     Dosage: 150MCG WEEKLY SQ
     Route: 058
     Dates: start: 20090311, end: 20110828

REACTIONS (1)
  - DEATH [None]
